FAERS Safety Report 17500843 (Version 4)
Quarter: 2020Q2

REPORT INFORMATION
  Report Type: Spontaneous
  Country: DE (occurrence: DE)
  Receive Date: 20200305
  Receipt Date: 20200414
  Transmission Date: 20200713
  Serious: Yes (Other)
  Sender: FDA-Public Use
  Company Number: DE-BEH-2020113740

PATIENT
  Age: 61 Year
  Sex: Male

DRUGS (2)
  1. HIZENTRA [Suspect]
     Active Substance: HUMAN IMMUNOGLOBULIN G
     Indication: CHRONIC INFLAMMATORY DEMYELINATING POLYRADICULONEUROPATHY
     Dosage: 10 GRAM (50 ML) QW, 2 INJECTION SITES RESPECTIVELY
     Route: 058
     Dates: start: 20200124
  2. HIZENTRA [Suspect]
     Active Substance: HUMAN IMMUNOGLOBULIN G
     Dosage: UNK
     Route: 065
     Dates: start: 20200301, end: 20200301

REACTIONS (7)
  - Injection site swelling [Unknown]
  - Chronic inflammatory demyelinating polyradiculoneuropathy [Unknown]
  - Injection site extravasation [Unknown]
  - Malabsorption from administration site [Unknown]
  - Injection site induration [Unknown]
  - Injection site pain [Unknown]
  - Malabsorption from administration site [Unknown]

NARRATIVE: CASE EVENT DATE: 202002
